FAERS Safety Report 20650334 (Version 5)
Quarter: 2025Q4

REPORT INFORMATION
  Report Type: Spontaneous
  Country: EU (occurrence: EU)
  Receive Date: 20220329
  Receipt Date: 20251222
  Transmission Date: 20260117
  Serious: Yes (Other)
  Sender: MYLAN
  Company Number: EU-ADIENNEP-2022AD000130

PATIENT
  Age: 37 Year
  Sex: Male

DRUGS (40)
  1. MYCOPHENOLATE MOFETIL [Suspect]
     Active Substance: MYCOPHENOLATE MOFETIL
     Indication: Prophylaxis against graft versus host disease
     Dosage: 3 MG/KG 3 DAYS BEFORE DUCBT AND 1 MONTH AFTER
  2. MYCOPHENOLATE MOFETIL [Suspect]
     Active Substance: MYCOPHENOLATE MOFETIL
     Dosage: 3 MG/KG 3 DAYS BEFORE DUCBT AND 1 MONTH AFTER
     Route: 065
  3. MYCOPHENOLATE MOFETIL [Suspect]
     Active Substance: MYCOPHENOLATE MOFETIL
     Dosage: 3 MG/KG 3 DAYS BEFORE DUCBT AND 1 MONTH AFTER
     Route: 065
  4. MYCOPHENOLATE MOFETIL [Suspect]
     Active Substance: MYCOPHENOLATE MOFETIL
     Dosage: 3 MG/KG 3 DAYS BEFORE DUCBT AND 1 MONTH AFTER
  5. FLUDARABINE [Suspect]
     Active Substance: FLUDARABINE PHOSPHATE
     Indication: Cord blood transplant therapy
     Dosage: 40 MILLIGRAM/SQ. METER
  6. FLUDARABINE [Suspect]
     Active Substance: FLUDARABINE PHOSPHATE
     Indication: Bone marrow conditioning regimen
     Dosage: 40 MILLIGRAM/SQ. METER
     Route: 042
  7. FLUDARABINE [Suspect]
     Active Substance: FLUDARABINE PHOSPHATE
     Indication: Cord blood transplant therapy
     Dosage: 40 MILLIGRAM/SQ. METER
     Route: 042
  8. FLUDARABINE [Suspect]
     Active Substance: FLUDARABINE PHOSPHATE
     Dosage: 40 MILLIGRAM/SQ. METER
  9. BUSULFAN [Suspect]
     Active Substance: BUSULFAN
     Indication: Cord blood transplant therapy
     Dosage: 3.2 MILLIGRAM/KILOGRAM
  10. BUSULFAN [Suspect]
     Active Substance: BUSULFAN
     Indication: Bone marrow conditioning regimen
     Dosage: 3.2 MILLIGRAM/KILOGRAM
  11. BUSULFAN [Suspect]
     Active Substance: BUSULFAN
     Indication: Cord blood transplant therapy
     Dosage: 3.2 MILLIGRAM/KILOGRAM
     Route: 042
  12. BUSULFAN [Suspect]
     Active Substance: BUSULFAN
     Dosage: 3.2 MILLIGRAM/KILOGRAM
     Route: 042
  13. BUSULFAN [Suspect]
     Active Substance: BUSULFAN
     Dosage: 3 MILLIGRAM/KILOGRAM
  14. BUSULFAN [Suspect]
     Active Substance: BUSULFAN
     Dosage: 3 MILLIGRAM/KILOGRAM
  15. BUSULFAN [Suspect]
     Active Substance: BUSULFAN
     Dosage: 3 MILLIGRAM/KILOGRAM
     Route: 042
  16. BUSULFAN [Suspect]
     Active Substance: BUSULFAN
     Dosage: 3 MILLIGRAM/KILOGRAM
     Route: 042
  17. GEMCITABINE [Suspect]
     Active Substance: GEMCITABINE
     Indication: Hodgkin^s disease
     Dosage: 800 MILLIGRAM/SQ. METER, ON DAYS 1 AND 8 EVERY 21 DAYS
  18. GEMCITABINE [Suspect]
     Active Substance: GEMCITABINE
     Dosage: 800 MILLIGRAM/SQ. METER, ON DAYS 1 AND 8 EVERY 21 DAYS
     Route: 042
  19. GEMCITABINE [Suspect]
     Active Substance: GEMCITABINE
     Dosage: 800 MILLIGRAM/SQ. METER, ON DAYS 1 AND 8 EVERY 21 DAYS
     Route: 042
  20. GEMCITABINE [Suspect]
     Active Substance: GEMCITABINE
     Dosage: 800 MILLIGRAM/SQ. METER, ON DAYS 1 AND 8 EVERY 21 DAYS
  21. CYCLOSPORINE [Suspect]
     Active Substance: CYCLOSPORINE
     Indication: Prophylaxis against graft versus host disease
     Dosage: 3 MILLIGRAM/KILOGRAM, QD
  22. CYCLOSPORINE [Suspect]
     Active Substance: CYCLOSPORINE
     Dosage: 3 MILLIGRAM/KILOGRAM, QD
     Route: 042
  23. CYCLOSPORINE [Suspect]
     Active Substance: CYCLOSPORINE
     Dosage: 3 MILLIGRAM/KILOGRAM, QD
     Route: 042
  24. CYCLOSPORINE [Suspect]
     Active Substance: CYCLOSPORINE
     Dosage: 3 MILLIGRAM/KILOGRAM, QD
  25. TEPADINA [Suspect]
     Active Substance: THIOTEPA
     Indication: Cord blood transplant therapy
     Dosage: 5 MILLIGRAM/KILOGRAM
  26. TEPADINA [Suspect]
     Active Substance: THIOTEPA
     Indication: Neoplasm malignant
     Dosage: 5 MILLIGRAM/KILOGRAM
     Route: 042
  27. TEPADINA [Suspect]
     Active Substance: THIOTEPA
     Dosage: 5 MILLIGRAM/KILOGRAM
     Route: 042
  28. TEPADINA [Suspect]
     Active Substance: THIOTEPA
     Dosage: 5 MILLIGRAM/KILOGRAM
  29. THYMOGLOBULIN [Suspect]
     Active Substance: LAPINE T-LYMPHOCYTE IMMUNE GLOBULIN
     Indication: Cord blood transplant therapy
     Dosage: 5 MILLIGRAM/KILOGRAM
  30. THYMOGLOBULIN [Suspect]
     Active Substance: LAPINE T-LYMPHOCYTE IMMUNE GLOBULIN
     Indication: Bone marrow conditioning regimen
     Dosage: 5 MILLIGRAM/KILOGRAM
     Route: 042
  31. THYMOGLOBULIN [Suspect]
     Active Substance: LAPINE T-LYMPHOCYTE IMMUNE GLOBULIN
     Indication: Cord blood transplant therapy
     Dosage: 5 MILLIGRAM/KILOGRAM
     Route: 042
  32. THYMOGLOBULIN [Suspect]
     Active Substance: LAPINE T-LYMPHOCYTE IMMUNE GLOBULIN
     Dosage: 5 MILLIGRAM/KILOGRAM
  33. DOXORUBICIN [Suspect]
     Active Substance: DOXORUBICIN
     Indication: Hodgkin^s disease
     Dosage: 10 MILLIGRAM/SQ. METER, ON DAYS 1 AND 8 EVERY 21 DAYS
  34. DOXORUBICIN [Suspect]
     Active Substance: DOXORUBICIN
     Dosage: 10 MILLIGRAM/SQ. METER, ON DAYS 1 AND 8 EVERY 21 DAYS
     Route: 042
  35. DOXORUBICIN [Suspect]
     Active Substance: DOXORUBICIN
     Dosage: 10 MILLIGRAM/SQ. METER, ON DAYS 1 AND 8 EVERY 21 DAYS
     Route: 042
  36. DOXORUBICIN [Suspect]
     Active Substance: DOXORUBICIN
     Dosage: 10 MILLIGRAM/SQ. METER, ON DAYS 1 AND 8 EVERY 21 DAYS
  37. VINORELBINE [Suspect]
     Active Substance: VINORELBINE TARTRATE
     Indication: Hodgkin^s disease
     Dosage: 15 MILLIGRAM/SQ. METER, ON DAYS 1 AND 8 EVERY 21 DAYS
  38. VINORELBINE [Suspect]
     Active Substance: VINORELBINE TARTRATE
     Dosage: 15 MILLIGRAM/SQ. METER, ON DAYS 1 AND 8 EVERY 21 DAYS
     Route: 042
  39. VINORELBINE [Suspect]
     Active Substance: VINORELBINE TARTRATE
     Dosage: 15 MILLIGRAM/SQ. METER, ON DAYS 1 AND 8 EVERY 21 DAYS
     Route: 042
  40. VINORELBINE [Suspect]
     Active Substance: VINORELBINE TARTRATE
     Dosage: 15 MILLIGRAM/SQ. METER, ON DAYS 1 AND 8 EVERY 21 DAYS

REACTIONS (8)
  - Neck pain [Unknown]
  - Retinopathy haemorrhagic [Recovered/Resolved]
  - Hyperfibrinogenaemia [Unknown]
  - Headache [Unknown]
  - Thrombocytopenia [Recovered/Resolved]
  - Visual field defect [Unknown]
  - Off label use [Unknown]
  - Product use in unapproved indication [Unknown]
